FAERS Safety Report 11365918 (Version 2)
Quarter: 2015Q4

REPORT INFORMATION
  Report Type: Spontaneous
  Country: US (occurrence: US)
  Receive Date: 20150811
  Receipt Date: 20151002
  Transmission Date: 20160304
  Serious: No
  Sender: FDA-Public Use
  Company Number: US-BAYER-2015-390071

PATIENT
  Sex: Male

DRUGS (2)
  1. AVELOX [Suspect]
     Active Substance: MOXIFLOXACIN HYDROCHLORIDE
     Dosage: 400 MG, UNK
     Dates: start: 20091010
  2. LEVAQUIN [Suspect]
     Active Substance: LEVOFLOXACIN
     Dosage: 500 MG, UNK
     Dates: start: 201010

REACTIONS (7)
  - Emotional distress [None]
  - Economic problem [None]
  - Neuropathy peripheral [None]
  - Injury [None]
  - Back pain [None]
  - Pain [None]
  - Hypoaesthesia [None]
